FAERS Safety Report 16410103 (Version 1)
Quarter: 2019Q2

REPORT INFORMATION
  Report Type: Spontaneous
  Country: DK (occurrence: DK)
  Receive Date: 20190610
  Receipt Date: 20190610
  Transmission Date: 20190711
  Serious: Yes (Other)
  Sender: FDA-Public Use
  Company Number: DK-MYLANLABS-2019M1053365

PATIENT
  Age: 27 Year
  Sex: Female

DRUGS (9)
  1. DIAZEPAM. [Concomitant]
     Active Substance: DIAZEPAM
     Dosage: DOSAGE FORM: UNSPECIFIED
     Route: 065
  2. AKARIN [Suspect]
     Active Substance: CITALOPRAM HYDROBROMIDE
     Dosage: 10 MILLIGRAM; DOSAGE FORM: UNSPECIFIED
  3. ARIPIPRAZOLE. [Concomitant]
     Active Substance: ARIPIPRAZOLE
     Dosage: 30 MILLIGRAM; DOSAGE FORM: UNSPECIFIED
  4. AKARIN [Suspect]
     Active Substance: CITALOPRAM HYDROBROMIDE
     Indication: PSYCHOTIC DISORDER
     Dosage: 40 MILLIGRAM; DOSAGE FORM: UNSPECIFIED
  5. RISPERIDONE. [Suspect]
     Active Substance: RISPERIDONE
     Indication: PSYCHOTIC DISORDER
     Dosage: 4 MILLIGRAM; DOSAGE FORM: UNSPECIFIED
     Route: 065
  6. RISPERIDONE. [Suspect]
     Active Substance: RISPERIDONE
     Dosage: 6 MILLIGRAM; DOSAGE FORM: UNSPECIFIED
     Route: 065
  7. RISPERIDONE. [Suspect]
     Active Substance: RISPERIDONE
     Dosage: 0.5 MILLIGRAM, DOSAGE FORM: UNSPECIFIED, 0.5MG AS NEEDED WITH 4MG
     Route: 065
  8. ESCITALOPRAM [Concomitant]
     Active Substance: ESCITALOPRAM OXALATE
     Dosage: 10 MILLIGRAM; DOSAGE FORM: UNSPECIFIED
  9. AKARIN [Suspect]
     Active Substance: CITALOPRAM HYDROBROMIDE
     Dosage: 20 MILLIGRAM; DOSAGE FORM: UNSPECIFIED

REACTIONS (4)
  - Psychotic disorder [Unknown]
  - Morbid thoughts [Unknown]
  - Depressive symptom [Unknown]
  - Maternal exposure during pregnancy [Recovered/Resolved]
